FAERS Safety Report 9342442 (Version 3)
Quarter: 2013Q3

REPORT INFORMATION
  Report Type: Spontaneous
  Country: DK (occurrence: JP)
  Receive Date: 20130611
  Receipt Date: 20130710
  Transmission Date: 20140515
  Serious: Yes (Life-Threatening)
  Sender: FDA-Public Use
  Company Number: JP-FRI-1000045785

PATIENT
  Age: 75 Year
  Sex: Male

DRUGS (10)
  1. LEXAPRO [Suspect]
     Indication: SOMATOFORM DISORDER
     Dosage: 10 MG
     Route: 045
     Dates: start: 20130426, end: 20130426
  2. LEXAPRO [Suspect]
     Dosage: 10 MG
     Route: 045
     Dates: start: 20130507, end: 20130512
  3. LEXAPRO [Suspect]
     Dosage: 20 MG
     Route: 045
     Dates: start: 20130513, end: 20130526
  4. ARICEPT D [Suspect]
     Indication: DEMENTIA ALZHEIMER^S TYPE
     Dosage: 2.5 MG
     Route: 045
     Dates: start: 20130510
  5. ARICEPT D [Suspect]
     Dosage: 5 MG
     Route: 045
     Dates: start: 20130513, end: 20130527
  6. DAIKENCHUTO [Concomitant]
     Route: 048
     Dates: start: 20130507, end: 20130517
  7. MAGMITT [Concomitant]
     Route: 048
     Dates: start: 20130507, end: 20130517
  8. ZYPREXA [Concomitant]
     Dosage: 2.5 MG
     Dates: start: 20130516, end: 20130516
  9. ZYPREXA [Concomitant]
     Dosage: 5 MG
     Dates: start: 20130516, end: 20130517
  10. ZYPREXA [Concomitant]
     Dosage: 2.5 MG
     Dates: start: 20130518, end: 20130520

REACTIONS (4)
  - Ventricular tachycardia [Not Recovered/Not Resolved]
  - Electrocardiogram QT prolonged [Not Recovered/Not Resolved]
  - Cardio-respiratory arrest [Not Recovered/Not Resolved]
  - Off label use [Unknown]
